FAERS Safety Report 23835767 (Version 1)
Quarter: 2024Q2

REPORT INFORMATION
  Report Type: Spontaneous
  Country: NL (occurrence: NL)
  Receive Date: 20240509
  Receipt Date: 20240509
  Transmission Date: 20240716
  Serious: Yes (Other)
  Sender: FDA-Public Use
  Company Number: None

PATIENT

DRUGS (2)
  1. FLUTICASONE PROPIONATE\SALMETEROL XINAFOATE [Suspect]
     Active Substance: FLUTICASONE PROPIONATE\SALMETEROL XINAFOATE
     Indication: Dyspnoea
     Dosage: 2 PUFF(S), BID (2 PUFFS TWICE A DAY)
     Route: 055
     Dates: start: 20240412, end: 20240415
  2. VENTOLIN [Concomitant]
     Active Substance: ALBUTEROL SULFATE
     Indication: Product used for unknown indication
     Dosage: UNK (AEROSOL, 100 ?G/DOSE (MICROGRAMS PER DOSE))
     Route: 065

REACTIONS (4)
  - Hallucination, visual [Recovered/Resolved]
  - Migraine [Recovered/Resolved]
  - Obsessive-compulsive disorder [Recovered/Resolved]
  - Fear [Recovered/Resolved]
